FAERS Safety Report 9249404 (Version 3)
Quarter: 2018Q4

REPORT INFORMATION
  Report Type: Spontaneous
  Country: DE (occurrence: DE)
  Receive Date: 20130423
  Receipt Date: 20181226
  Transmission Date: 20190205
  Serious: Yes (Death)
  Sender: FDA-Public Use
  Company Number: DE-TEVA-397629GER

PATIENT
  Age: 83 Year
  Sex: Female
  Weight: 60 kg

DRUGS (6)
  1. GRIPPEIMPFSTOFF [Suspect]
     Active Substance: INFLUENZA VIRUS VACCINE
     Indication: PRODUCT USED FOR UNKNOWN INDICATION
     Route: 065
  2. FOSAMAX [Suspect]
     Active Substance: ALENDRONATE SODIUM
     Indication: PRODUCT USED FOR UNKNOWN INDICATION
     Route: 065
  3. BONEFOS [Suspect]
     Active Substance: CLODRONATE DISODIUM
     Indication: OSTEOPOROSIS
     Dosage: .1429 DOSAGE FORMS DAILY;
     Route: 048
     Dates: start: 20000701, end: 20060122
  4. TETANUS TOXOID ADSORBED (VACCINE) [Suspect]
     Active Substance: CLOSTRIDIUM TETANI TOXOID ANTIGEN (FORMALDEHYDE INACTIVATED)
     Indication: PRODUCT USED FOR UNKNOWN INDICATION
     Route: 065
  5. FOSAVANCE [Suspect]
     Active Substance: ALENDRONATE SODIUM\CHOLECALCIFEROL
     Route: 065
  6. IBUPROFEN. [Suspect]
     Active Substance: IBUPROFEN
     Indication: PRODUCT USED FOR UNKNOWN INDICATION
     Route: 065

REACTIONS (13)
  - Renal cyst [Fatal]
  - Mucous stools [Fatal]
  - Ear pain [Fatal]
  - Confusional state [Fatal]
  - Fungal infection [Fatal]
  - Oesophageal discomfort [Fatal]
  - Osteonecrosis of jaw [Fatal]
  - Oesophagitis [Fatal]
  - Non-cardiac chest pain [Fatal]
  - Bronchitis [Fatal]
  - Diarrhoea [Fatal]
  - Dysphagia [Fatal]
  - Dyspnoea [Fatal]

NARRATIVE: CASE EVENT DATE: 20050101
